FAERS Safety Report 5858014-0 (Version None)
Quarter: 2008Q3

REPORT INFORMATION
  Report Type: 
  Country: None (occurrence: None)
  Receive Date: 20080822
  Receipt Date: 20080806
  Transmission Date: 20090109
  Serious: Yes (Hospitalization)
  Sender: FDA-Public Use
  Company Number: 8035958

PATIENT
  Age: 6 Year
  Sex: Male

DRUGS (5)
  1. EQUASYM [Suspect]
     Indication: ATTENTION DEFICIT/HYPERACTIVITY DISORDER
     Dosage: 20 MG /D PO
     Route: 048
     Dates: start: 20080101
  2. EQUASYM [Suspect]
     Indication: ATTENTION DEFICIT/HYPERACTIVITY DISORDER
     Dosage: 30 MG /D PO
     Route: 048
     Dates: start: 20080201, end: 20080510
  3. EQUASYM [Suspect]
     Indication: ATTENTION DEFICIT/HYPERACTIVITY DISORDER
     Dosage: 30 MG /D PO
     Route: 048
     Dates: start: 20080529, end: 20080529
  4. FLIXONASE [Concomitant]
  5. FLIXOTIDE [Concomitant]

REACTIONS (3)
  - DIPLOPIA [None]
  - DYSURIA [None]
  - STRABISMUS [None]
